FAERS Safety Report 7994674-6 (Version None)
Quarter: 2011Q4

REPORT INFORMATION
  Report Type: 
  Country: None (occurrence: None)
  Receive Date: 20111220
  Receipt Date: 20111212
  Transmission Date: 20120403
  Serious: Yes (Other)
  Sender: FDA-Public Use
  Company Number: US-BAYER-2010-008954

PATIENT
  Age: 44 Year
  Sex: Female
  Weight: 68 kg

DRUGS (9)
  1. YASMIN [Suspect]
     Indication: ACNE
     Dosage: UNK
     Route: 048
     Dates: start: 20051101, end: 20090801
  2. DROSPIRENONE AND ETHINYL ESTRADIOL [Suspect]
     Indication: MENSTRUAL DISORDER
  3. SYNTHROID [Concomitant]
     Dosage: 75 ?G, QD
     Route: 048
  4. LORTAB [Concomitant]
  5. DROSPIRENONE AND ETHINYL ESTRADIOL [Suspect]
     Indication: ACNE
     Dosage: UNK
     Route: 048
     Dates: start: 20051101, end: 20090801
  6. YASMIN [Suspect]
     Indication: MENSTRUAL DISORDER
  7. TRIAMCINOLONE [Concomitant]
  8. SONATA [Concomitant]
     Dosage: 5 MG, HS
     Route: 048
  9. METHYLPREDNISOLONE [Concomitant]

REACTIONS (4)
  - PAIN [None]
  - MENTAL DISORDER [None]
  - DEEP VEIN THROMBOSIS [None]
  - INJURY [None]
